FAERS Safety Report 5177181-8 (Version None)
Quarter: 2006Q4

REPORT INFORMATION
  Report Type: 
  Country: None (occurrence: None)
  Receive Date: 20061218
  Receipt Date: 20061211
  Transmission Date: 20070319
  Serious: Yes (Other)
  Sender: FDA-Public Use
  Company Number: US-BRISTOL-MYERS SQUIBB COMPANY-13608252

PATIENT
  Age: 18 Year
  Sex: Female

DRUGS (2)
  1. ACETYLCYSTEINE [Suspect]
     Route: 040
  2. ACETAMINOPHEN [Suspect]

REACTIONS (4)
  - ANAPHYLACTOID REACTION [None]
  - MENTAL IMPAIRMENT [None]
  - PROTHROMBIN TIME PROLONGED [None]
  - TRANSAMINASES INCREASED [None]
